FAERS Safety Report 25795921 (Version 1)
Quarter: 2025Q3

REPORT INFORMATION
  Report Type: Spontaneous
  Country: JP (occurrence: JP)
  Receive Date: 20250912
  Receipt Date: 20250912
  Transmission Date: 20251021
  Serious: Yes (Other)
  Sender: MYLAN
  Company Number: JP-MYE-2025M1076799AA

PATIENT
  Age: 83 Year
  Sex: Female

DRUGS (8)
  1. TACROLIMUS [Suspect]
     Active Substance: TACROLIMUS
     Indication: Immunosuppressant drug therapy
  2. GANCICLOVIR [Suspect]
     Active Substance: GANCICLOVIR
     Indication: Cytomegalovirus infection
     Dosage: 100 MILLIGRAM, QD
  3. METHOTREXATE [Suspect]
     Active Substance: METHOTREXATE
     Indication: Rheumatoid arthritis
  4. METHYLPREDNISOLONE [Suspect]
     Active Substance: METHYLPREDNISOLONE
     Indication: Immunosuppressant drug therapy
  5. HYDROCORTISONE [Suspect]
     Active Substance: HYDROCORTISONE
     Indication: Immunosuppressant drug therapy
  6. EDOXABAN [Concomitant]
     Active Substance: EDOXABAN
     Indication: Pulmonary embolism
  7. MEROPENEM [Concomitant]
     Active Substance: MEROPENEM
     Indication: Enterobacter infection
  8. TENOFOVIR [Concomitant]
     Active Substance: TENOFOVIR
     Indication: Hepatitis B reactivation

REACTIONS (19)
  - Pulmonary embolism [Unknown]
  - Hypotension [Unknown]
  - Hypoxia [Unknown]
  - Diverticular perforation [Unknown]
  - Mental status changes [Unknown]
  - Haematochezia [Unknown]
  - Anaemia [Unknown]
  - Coagulopathy [Unknown]
  - Shock [Unknown]
  - Rectal ulcer [Unknown]
  - Diarrhoea [Unknown]
  - Hyperbilirubinaemia [Unknown]
  - Pleural effusion [Unknown]
  - Ascites [Unknown]
  - Abdominal pain [Unknown]
  - Gastrointestinal perforation [Unknown]
  - Cytomegalovirus colitis [Unknown]
  - Enterobacter infection [Unknown]
  - Drug ineffective [Unknown]
